FAERS Safety Report 4611499-X (Version None)
Quarter: 2005Q1

REPORT INFORMATION
  Report Type: 
  Country: None (occurrence: None)
  Receive Date: 20050317
  Receipt Date: 20050106
  Transmission Date: 20050727
  Serious: Yes (Hospitalization)
  Sender: FDA-Public Use
  Company Number: FR-ROCHE-391697

PATIENT
  Age: 63 Year
  Sex: Female
  Weight: 74 kg

DRUGS (7)
  1. PEGASYS [Suspect]
     Indication: HEPATITIS C
     Route: 058
     Dates: start: 20040423, end: 20041013
  2. PEGASYS [Suspect]
     Route: 058
  3. COPEGUS [Suspect]
     Indication: HEPATITIS C
     Route: 048
     Dates: start: 20040423, end: 20041013
  4. AMIKACIN [Suspect]
     Indication: URINARY TRACT INFECTION
     Route: 065
     Dates: end: 20041015
  5. PARACETAMOL [Concomitant]
     Route: 048
     Dates: start: 20040415, end: 20041015
  6. GLUCOPHAGE [Concomitant]
     Route: 048
     Dates: start: 20030115, end: 20041015
  7. DAONIL [Concomitant]
     Route: 048
     Dates: start: 20030115, end: 20041015

REACTIONS (7)
  - ANAEMIA [None]
  - NEUTROPENIA [None]
  - OESOPHAGITIS [None]
  - PANCYTOPENIA [None]
  - PERIPHERAL MOTOR NEUROPATHY [None]
  - RENAL FAILURE [None]
  - SEPSIS [None]
